FAERS Safety Report 4919609-1 (Version None)
Quarter: 2006Q1

REPORT INFORMATION
  Report Type: 
  Country: None (occurrence: None)
  Receive Date: 20060215
  Receipt Date: 20060209
  Transmission Date: 20060701
  Serious: Yes (Hospitalization)
  Sender: FDA-Public Use
  Company Number: HQWYE513026JAN06

PATIENT
  Age: 69 Year
  Sex: Male

DRUGS (5)
  1. CORDARONE [Suspect]
     Dosage: 200 MG 1X PER 1 DAY; 100 MG 1X PER 1 DAY
     Route: 048
     Dates: start: 20030101, end: 20040101
  2. CORDARONE [Suspect]
     Dosage: 200 MG 1X PER 1 DAY; 100 MG 1X PER 1 DAY
     Route: 048
     Dates: start: 20040101, end: 20060101
  3. STRUMAZOL (THIAMAZOLE) [Concomitant]
  4. MARCUMAR [Concomitant]
  5. OMNIC (TAMSULOSIN HYDROCHLORIDE) [Concomitant]

REACTIONS (1)
  - PSYCHOTIC DISORDER [None]
